FAERS Safety Report 13905204 (Version 2)
Quarter: 2017Q3

REPORT INFORMATION
  Report Type: Spontaneous
  Country: US (occurrence: US)
  Receive Date: 20170825
  Receipt Date: 20170907
  Transmission Date: 20171127
  Serious: No
  Sender: FDA-Public Use
  Company Number: US-FRESENIUS KABI-FK201707124

PATIENT
  Age: 77 Year
  Sex: Female
  Weight: 87.17 kg

DRUGS (2)
  1. DIPYRIDAMOLE (MANUFACTURER UNKNOWN) [Suspect]
     Active Substance: DIPYRIDAMOLE
     Indication: CARDIAC STRESS TEST
     Route: 042
     Dates: start: 20170816, end: 20170816
  2. SESTAMIBI TC99 [Concomitant]
     Indication: CARDIAC STRESS TEST
     Route: 042
     Dates: start: 20170816, end: 20170816

REACTIONS (3)
  - Headache [Unknown]
  - Abdominal pain upper [Unknown]
  - Nausea [Unknown]

NARRATIVE: CASE EVENT DATE: 20170816
